FAERS Safety Report 7216055-5 (Version None)
Quarter: 2011Q1

REPORT INFORMATION
  Report Type: 
  Country: None (occurrence: None)
  Receive Date: 20110107
  Receipt Date: 20101227
  Transmission Date: 20110831
  Serious: Yes (Death)
  Sender: FDA-Public Use
  Company Number: NL-TEVA-262147ISR

PATIENT
  Age: 56 Year
  Sex: Male

DRUGS (1)
  1. MORPHINE [Suspect]
     Indication: PALLIATIVE CARE
     Route: 042

REACTIONS (2)
  - GASTROINTESTINAL PERFORATION [None]
  - ILEUS PARALYTIC [None]
